FAERS Safety Report 18732163 (Version 1)
Quarter: 2021Q1

REPORT INFORMATION
  Report Type: Spontaneous
  Country: UZ (occurrence: UZ)
  Receive Date: 20210112
  Receipt Date: 20210112
  Transmission Date: 20210419
  Serious: Yes (Other)
  Sender: FDA-Public Use
  Company Number: NVSC2021UZ004398

PATIENT
  Sex: Female

DRUGS (1)
  1. GLIVEC [Suspect]
     Active Substance: IMATINIB MESYLATE
     Indication: CHRONIC MYELOID LEUKAEMIA
     Dosage: 400 MG (4 X 100 MG)
     Route: 065

REACTIONS (4)
  - Nausea [Unknown]
  - Duodenal ulcer [Unknown]
  - Vomiting [Unknown]
  - Drug resistance [Unknown]
